FAERS Safety Report 10633320 (Version 4)
Quarter: 2015Q2

REPORT INFORMATION
  Report Type: Spontaneous
  Country: DE (occurrence: None)
  Receive Date: 20141203
  Receipt Date: 20150605
  Transmission Date: 20150821
  Serious: Yes (Hospitalization)
  Sender: FDA-Public Use
  Company Number: DE-2014VAL000613

PATIENT
  Age: 75 Year
  Sex: Male
  Weight: 80.2 kg

DRUGS (2)
  1. AIN457 VS PLACEBO [Concomitant]
     Active Substance: SECUKINUMAB
     Route: 058
     Dates: start: 20140915, end: 20141013
  2. METOPROLOL TARTRATE. [Suspect]
     Active Substance: METOPROLOL TARTRATE
     Indication: ATRIAL FLUTTER
     Dosage: CODE NOT BROKEN
     Dates: start: 20141010

REACTIONS (3)
  - Atrioventricular block complete [None]
  - Atrial flutter [None]
  - Arteriosclerosis coronary artery [None]

NARRATIVE: CASE EVENT DATE: 20140915
